FAERS Safety Report 4862982-3 (Version None)
Quarter: 2005Q4

REPORT INFORMATION
  Report Type: 
  Country: None (occurrence: None)
  Receive Date: 20051221
  Receipt Date: 20051213
  Transmission Date: 20060501
  Serious: Yes (Hospitalization, Disabling)
  Sender: FDA-Public Use
  Company Number: SI-MERCK-0512HUN00007

PATIENT
  Age: 67 Year
  Sex: Male
  Weight: 89 kg

DRUGS (11)
  1. ZOCOR [Suspect]
     Indication: HYPERCHOLESTEROLAEMIA
     Route: 048
     Dates: start: 19990201, end: 20021201
  2. ZOCOR [Suspect]
     Route: 048
     Dates: start: 20021204, end: 20050201
  3. ZOCOR [Suspect]
     Route: 048
     Dates: start: 20050201, end: 20050901
  4. ZOCOR [Suspect]
     Indication: HYPERTENSION
     Route: 048
     Dates: start: 19990201, end: 20021201
  5. ZOCOR [Suspect]
     Route: 048
     Dates: start: 20021204, end: 20050201
  6. ZOCOR [Suspect]
     Route: 048
     Dates: start: 20050201, end: 20050901
  7. HYDROCHLOROTHIAZIDE AND VALSARTAN [Concomitant]
     Indication: HYPERTENSION
     Route: 048
     Dates: start: 19980101
  8. OMEPRAZOLE [Concomitant]
     Route: 048
  9. EZETIMIBE [Concomitant]
     Indication: HYPERCHOLESTEROLAEMIA
     Route: 048
     Dates: start: 20050201, end: 20050901
  10. TAMSULOSIN HYDROCHLORIDE [Concomitant]
     Indication: BENIGN PROSTATIC HYPERPLASIA
     Route: 048
  11. DUTASTERIDE [Concomitant]
     Indication: BENIGN PROSTATIC HYPERPLASIA
     Route: 048

REACTIONS (2)
  - PAIN IN EXTREMITY [None]
  - PERIPHERAL SENSORIMOTOR NEUROPATHY [None]
